FAERS Safety Report 8341451-2 (Version None)
Quarter: 2012Q2

REPORT INFORMATION
  Report Type: 
  Country: None (occurrence: None)
  Receive Date: 20120507
  Receipt Date: 20120430
  Transmission Date: 20120825
  Serious: Yes (Hospitalization, Disabling, Other)
  Sender: FDA-Public Use
  Company Number: US-MERCK-1202USA00996

PATIENT
  Age: 70 Year
  Sex: Male
  Weight: 75 kg

DRUGS (3)
  1. GLIPIZIDE [Concomitant]
     Route: 065
  2. JANUVIA [Suspect]
     Indication: TYPE 2 DIABETES MELLITUS
     Route: 048
     Dates: start: 20110101
  3. METFORMIN [Concomitant]
     Route: 048

REACTIONS (6)
  - CONSTIPATION [None]
  - SPLENOMEGALY [None]
  - ANAEMIA FOLATE DEFICIENCY [None]
  - CHILLS [None]
  - PYREXIA [None]
  - DYSLIPIDAEMIA [None]
